FAERS Safety Report 4616210-4 (Version None)
Quarter: 2005Q1

REPORT INFORMATION
  Report Type: 
  Country: None (occurrence: None)
  Receive Date: 20050321
  Receipt Date: 20050308
  Transmission Date: 20050727
  Serious: Yes (Hospitalization, Other)
  Sender: FDA-Public Use
  Company Number: 2005042350

PATIENT
  Age: 88 Year
  Sex: Male

DRUGS (4)
  1. DETROL LA [Suspect]
     Indication: HYPERTONIC BLADDER
     Dosage: UNKNOWN
     Route: 065
  2. PYRIDOSTIGMINE BROMIDE (PYRIDOSTIGMINE BROMIDE) [Suspect]
     Indication: MYASTHENIA GRAVIS
     Dosage: UNKNOWN
     Route: 065
     Dates: start: 20030101
  3. CLOPIDOGREL BISULFATE [Concomitant]
  4. PREDNISONE [Concomitant]

REACTIONS (6)
  - CONSTIPATION [None]
  - DEPRESSION [None]
  - DIARRHOEA [None]
  - DRUG INEFFECTIVE [None]
  - HIP FRACTURE [None]
  - MYASTHENIA GRAVIS [None]
